FAERS Safety Report 5096865-3 (Version None)
Quarter: 2006Q3

REPORT INFORMATION
  Report Type: 
  Country: None (occurrence: None)
  Receive Date: 20060901
  Receipt Date: 20060901
  Transmission Date: 20061208
  Serious: Yes (Other)
  Sender: FDA-Public Use
  Company Number: None

PATIENT
  Age: 72 Year
  Sex: Male
  Weight: 78.4723 kg

DRUGS (1)
  1. OMACOR [Suspect]
     Dosage: PO     (DURATION: ONLY TOOK TWO DOSES)
     Route: 048

REACTIONS (1)
  - POLYMYALGIA RHEUMATICA [None]
